FAERS Safety Report 12416680 (Version 1)
Quarter: 2016Q2

REPORT INFORMATION
  Report Type: Spontaneous
  Country: CN (occurrence: CN)
  Receive Date: 20160530
  Receipt Date: 20160530
  Transmission Date: 20160815
  Serious: Yes (Other)
  Sender: FDA-Public Use
  Company Number: CN-JNJFOC-20140806631

PATIENT
  Age: 54 Year
  Sex: Male

DRUGS (1)
  1. RISPERDAL [Suspect]
     Active Substance: RISPERIDONE
     Indication: MANIA
     Route: 048
     Dates: start: 20130729, end: 20130912

REACTIONS (3)
  - Hyperthyroidism [Unknown]
  - Obesity [Unknown]
  - Increased appetite [Unknown]

NARRATIVE: CASE EVENT DATE: 20130910
